FAERS Safety Report 9857122 (Version 3)
Quarter: 2014Q1

REPORT INFORMATION
  Report Type: Report from Study
  Country: CA (occurrence: CA)
  Receive Date: 20140130
  Receipt Date: 20140131
  Transmission Date: 20141002
  Serious: Yes (Other)
  Sender: FDA-Public Use
  Company Number: CA-ABBVIE-13P-028-1131122-00

PATIENT
  Age: 81 Year
  Sex: Female

DRUGS (2)
  1. HUMIRA [Suspect]
     Indication: CROHN^S DISEASE
     Route: 058
     Dates: start: 20110711, end: 20131224
  2. HUMIRA [Suspect]
     Dates: start: 20140110, end: 20140122

REACTIONS (4)
  - Eye pain [Unknown]
  - Cataract [Recovered/Resolved]
  - Dizziness [Unknown]
  - Cataract [Not Recovered/Not Resolved]
